FAERS Safety Report 6093121-1 (Version None)
Quarter: 2009Q1

REPORT INFORMATION
  Report Type: 
  Country: None (occurrence: None)
  Receive Date: 20090224
  Receipt Date: 20090224
  Transmission Date: 20090719
  Serious: No
  Sender: FDA-Public Use
  Company Number: None

PATIENT

DRUGS (1)
  1. BAYCOL [Suspect]

REACTIONS (5)
  - INJURY [None]
  - MYALGIA [None]
  - NASOPHARYNGITIS [None]
  - RENAL PAIN [None]
  - SINUS CONGESTION [None]
